FAERS Safety Report 9528473 (Version 1)
Quarter: 2013Q3

REPORT INFORMATION
  Report Type: Spontaneous
  Country: IT (occurrence: None)
  Receive Date: 20130913
  Receipt Date: 20130913
  Transmission Date: 20140515
  Serious: Yes (Hospitalization)
  Sender: FDA-Public Use
  Company Number: 2013256720

PATIENT
  Age: 73 Year
  Sex: Male

DRUGS (8)
  1. FRAGMIN [Suspect]
     Indication: THROMBOSIS PROPHYLAXIS
     Dosage: 1 DF, ALTERNATE DAY, SUBCUTANEOUS
     Dates: start: 20110101, end: 20130825
  2. LASIX (FUROSEMIDE) [Concomitant]
  3. TRIATEC (RAMIPRIL) [Concomitant]
  4. LOBIVON (NEBIVOLOL HYDROCHLORIDE) [Concomitant]
  5. NORVASC (AMLODIPINE BESILATE) [Concomitant]
  6. CARDURA (DOXAZOSIN MESILATE) [Concomitant]
  7. APROVEL (IRBESARTAN) [Concomitant]
  8. LANSOX (LANSOPRAZOLE) [Concomitant]

REACTIONS (3)
  - Abdominal pain [None]
  - Swelling [None]
  - Intra-abdominal haematoma [None]
